FAERS Safety Report 4853541-7 (Version None)
Quarter: 2005Q4

REPORT INFORMATION
  Report Type: 
  Country: None (occurrence: None)
  Receive Date: 20051214
  Receipt Date: 20051207
  Transmission Date: 20060501
  Serious: Yes (Hospitalization, Other)
  Sender: FDA-Public Use
  Company Number: US-JNJFOC-20051202126

PATIENT
  Sex: Female
  Weight: 86.18 kg

DRUGS (14)
  1. FENTANYL [Suspect]
     Route: 062
  2. FENTANYL [Suspect]
     Route: 062
  3. HYDRODIURIL [Concomitant]
  4. HYDRODIURIL [Concomitant]
  5. METFORMIN [Concomitant]
     Route: 048
  6. METFORMIN [Concomitant]
     Route: 048
  7. ZOCOR [Concomitant]
     Route: 048
  8. ZOCOR [Concomitant]
     Route: 048
  9. NEURONTIN [Concomitant]
     Route: 048
  10. NEURONTIN [Concomitant]
     Route: 048
  11. AMITRIPTYLINE HCL [Concomitant]
     Route: 048
  12. AMITRIPTYLINE HCL [Concomitant]
     Route: 048
  13. PANTOPRAZOLE [Concomitant]
     Route: 048
  14. PANTOPRAZOLE [Concomitant]
     Route: 048

REACTIONS (3)
  - BLOOD PRESSURE INCREASED [None]
  - FLATULENCE [None]
  - HYPERTENSION [None]
